FAERS Safety Report 9503281 (Version 3)
Quarter: 2017Q3

REPORT INFORMATION
  Report Type: Report from Study
  Country: US (occurrence: US)
  Receive Date: 20130906
  Receipt Date: 20170921
  Transmission Date: 20171128
  Serious: Yes (Hospitalization, Disabling, Other)
  Sender: FDA-Public Use
  Company Number: US-TAKEDA-2013TUS000004

PATIENT
  Age: 61 Year
  Sex: Male
  Weight: 165 kg

DRUGS (61)
  1. TRILIPIX [Concomitant]
     Active Substance: FENOFIBRIC ACID
     Dosage: 135 MG, QD
     Route: 048
     Dates: start: 20130809
  2. VITAMIN D [Concomitant]
     Active Substance: CHOLECALCIFEROL
     Indication: VITAMIN D DEFICIENCY
     Dosage: 1000 IU, QD
     Route: 048
     Dates: start: 2012, end: 20130804
  3. IRON [Concomitant]
     Active Substance: IRON
     Dosage: 50 MG, BID
     Route: 048
     Dates: start: 20130809
  4. VANCOMYCIN HCL IN SODIUM CHLORIDE [Concomitant]
     Indication: DIABETIC FOOT
     Dosage: 1000 MG, QD
     Route: 042
     Dates: start: 20130805, end: 20130805
  5. PERCOCET 5-325 [Concomitant]
     Indication: DIABETIC FOOT
     Dosage: 2 TABLETS MG, Q4HR
     Dates: start: 20130805, end: 20130806
  6. FEROUS SULFATE [Concomitant]
     Indication: ANAEMIA
     Dosage: 325 MG, QD
     Route: 048
     Dates: start: 20130806, end: 20130806
  7. HYDROMORPHONE [Concomitant]
     Active Substance: HYDROMORPHONE
     Dosage: 4 MG, QD
     Route: 048
     Dates: start: 20130806, end: 20130808
  8. FENOFIBRATE. [Concomitant]
     Active Substance: FENOFIBRATE
     Indication: HYPERLIPIDAEMIA
     Dosage: 145 MG, QD
     Route: 048
     Dates: start: 20130807, end: 20130807
  9. FORTAZ [Concomitant]
     Active Substance: CEFTAZIDIME SODIUM
     Indication: CELLULITIS
     Dosage: 2 G, QD
     Route: 042
     Dates: start: 20130520, end: 20130531
  10. SIMVASTATIN. [Concomitant]
     Active Substance: SIMVASTATIN
     Indication: HYPERLIPIDAEMIA
     Dosage: 40 MG, QD
     Route: 048
     Dates: start: 2003, end: 20130804
  11. SIMVASTATIN. [Concomitant]
     Active Substance: SIMVASTATIN
     Dosage: 40 MG, QD
     Route: 048
     Dates: start: 20130807, end: 20130807
  12. FINESTERIDE [Concomitant]
     Active Substance: FINASTERIDE
     Indication: BENIGN PROSTATIC HYPERPLASIA
     Dosage: 5 MG, QD
     Route: 048
     Dates: start: 2008, end: 20130804
  13. HUMALOG [Concomitant]
     Active Substance: INSULIN LISPRO
     Indication: DIABETES MELLITUS
     Dosage: SS IU, PRN
     Route: 058
     Dates: start: 2001
  14. DOXYCYCLINE. [Concomitant]
     Active Substance: DOXYCYCLINE
     Indication: OSTEOMYELITIS
     Dosage: 100 MG, BID
     Route: 048
     Dates: start: 20130207, end: 20130506
  15. HEPARIN [Concomitant]
     Active Substance: HEPARIN SODIUM
     Indication: THROMBOSIS PROPHYLAXIS
     Dosage: 5000 UNITS, BID
     Route: 058
     Dates: start: 20130806, end: 20130806
  16. HYDROMORPHONE [Concomitant]
     Active Substance: HYDROMORPHONE
     Indication: PHANTOM PAIN
     Dosage: 2 MG, QD
     Route: 048
     Dates: start: 20130806, end: 20130806
  17. CIPROFLOXACIN. [Concomitant]
     Active Substance: CIPROFLOXACIN
     Indication: CELLULITIS
     Dosage: 500 MG, BID
     Route: 048
     Dates: start: 20130618
  18. TRAZODONE [Concomitant]
     Active Substance: TRAZODONE HYDROCHLORIDE
     Dosage: 150 MG, QD
     Route: 048
     Dates: start: 20130807, end: 20130807
  19. TRAZODONE [Concomitant]
     Active Substance: TRAZODONE HYDROCHLORIDE
     Dosage: 150 MG, QD
     Route: 048
     Dates: start: 20130809
  20. LISINOPRIL. [Concomitant]
     Active Substance: LISINOPRIL
     Indication: HYPERTENSION
     Dosage: 10 MG, QD
     Route: 048
     Dates: start: 2003, end: 20130804
  21. NIASPAN [Concomitant]
     Active Substance: NIACIN
     Indication: HYPERLIPIDAEMIA
     Dosage: 1000 MG, QD
     Route: 048
     Dates: start: 2009, end: 201305
  22. LANTUS [Concomitant]
     Active Substance: INSULIN GLARGINE
     Indication: DIABETES MELLITUS
     Dosage: 60 IU, BID
     Route: 058
     Dates: start: 2001, end: 20130804
  23. FOLIC ACID. [Concomitant]
     Active Substance: FOLIC ACID
     Indication: NUTRITIONAL SUPPLEMENTATION
     Dosage: 1 MG, QD
     Route: 048
     Dates: start: 2007, end: 20130804
  24. ASPIRIN. [Concomitant]
     Active Substance: ASPIRIN
     Dosage: 81 MG, QD
     Route: 048
     Dates: start: 20130809
  25. DOXYCYCLINE. [Concomitant]
     Active Substance: DOXYCYCLINE
     Indication: CELLULITIS
     Dosage: 100 MG, BID
     Route: 048
     Dates: start: 20130516, end: 20130520
  26. LEVEMIR [Concomitant]
     Active Substance: INSULIN DETEMIR
     Indication: DIABETES MELLITUS
     Dosage: 60 IU, QD
     Route: 058
     Dates: start: 20130805, end: 20130805
  27. ALLOPURINOL. [Suspect]
     Active Substance: ALLOPURINOL
     Indication: HYPERURICAEMIA
     Dosage: UNK, QD
     Route: 048
     Dates: start: 20130228
  28. BUMETANIDE. [Concomitant]
     Active Substance: BUMETANIDE
     Indication: OEDEMA PERIPHERAL
     Dosage: 1 MG, BID
     Route: 048
     Dates: start: 20130227, end: 20130804
  29. TRILIPIX [Concomitant]
     Active Substance: FENOFIBRIC ACID
     Indication: HYPERLIPIDAEMIA
     Dosage: 135 MG, QD
     Route: 048
     Dates: start: 2008, end: 20130804
  30. VITAMIN D [Concomitant]
     Active Substance: CHOLECALCIFEROL
     Dosage: 1000 IU, QD
     Route: 048
     Dates: start: 20130808
  31. ASPIRIN. [Concomitant]
     Active Substance: ASPIRIN
     Indication: CORONARY ARTERY DISEASE
     Dosage: 81 MG, QD
     Route: 048
     Dates: start: 2001, end: 20130804
  32. TYLENOL [Concomitant]
     Active Substance: ACETAMINOPHEN
     Indication: BACK PAIN
     Dosage: 200 MG, PRN
     Route: 048
     Dates: start: 2001
  33. GABAPENTIN. [Concomitant]
     Active Substance: GABAPENTIN
     Indication: DIABETIC NEUROPATHY
     Dosage: 300 MG, QD
     Route: 048
     Dates: start: 20130514, end: 20130804
  34. GABAPENTIN. [Concomitant]
     Active Substance: GABAPENTIN
     Dosage: 300 MG, QD
     Route: 048
     Dates: start: 20130809
  35. LYRICA [Concomitant]
     Active Substance: PREGABALIN
     Indication: DIABETIC NEUROPATHY
     Dosage: 150 MG, QD
     Route: 048
     Dates: start: 2003, end: 20130513
  36. REQUIP [Concomitant]
     Active Substance: ROPINIROLE HYDROCHLORIDE
     Dosage: 2 MG, QD
     Route: 048
     Dates: start: 20130807, end: 20130807
  37. REQUIP [Concomitant]
     Active Substance: ROPINIROLE HYDROCHLORIDE
     Dosage: 2 MG, QD
     Route: 048
     Dates: start: 20130809
  38. FINESTERIDE [Concomitant]
     Active Substance: FINASTERIDE
     Dosage: 5 MG, QD
     Route: 048
     Dates: start: 20130808
  39. FOLIC ACID. [Concomitant]
     Active Substance: FOLIC ACID
     Indication: NUTRITIONAL SUPPLEMENTATION
     Dosage: 1 MG, QD
     Route: 048
     Dates: start: 20130808
  40. VITAMIN B12 [Concomitant]
     Active Substance: CYANOCOBALAMIN
     Indication: NUTRITIONAL SUPPLEMENTATION
     Dosage: 1 MG, QD
     Route: 048
     Dates: start: 2012, end: 20130804
  41. TEMAZEPAM. [Concomitant]
     Active Substance: TEMAZEPAM
     Indication: INSOMNIA
     Dosage: 15 MG, QD
     Route: 048
     Dates: start: 20130806, end: 20130806
  42. GENTOMYCIN TOPICAL [Concomitant]
     Indication: CELLULITIS
     Dosage: 1 APPLICATION, BID
     Route: 061
     Dates: start: 20130618, end: 20130804
  43. BUMETANIDE. [Concomitant]
     Active Substance: BUMETANIDE
     Indication: OEDEMA PERIPHERAL
     Dosage: 1 MG, QD
     Route: 048
     Dates: start: 20130807, end: 20130808
  44. TRAMADOL. [Concomitant]
     Active Substance: TRAMADOL
     Indication: BACK PAIN
     Dosage: 50 MG, PRN
     Route: 048
     Dates: start: 2009
  45. LANTUS [Concomitant]
     Active Substance: INSULIN GLARGINE
     Dosage: 60 IU, BID
     Route: 058
     Dates: start: 20130809
  46. LISINOPRIL. [Concomitant]
     Active Substance: LISINOPRIL
     Dosage: 10 MG, QD
     Route: 048
     Dates: start: 20130808
  47. REQUIP [Concomitant]
     Active Substance: ROPINIROLE HYDROCHLORIDE
     Indication: RESTLESS LEGS SYNDROME
     Dosage: 1 MG, QD
     Route: 048
     Dates: start: 2012, end: 201305
  48. REQUIP [Concomitant]
     Active Substance: ROPINIROLE HYDROCHLORIDE
     Dosage: 2 MG, QD
     Route: 048
     Dates: start: 201305, end: 20130804
  49. IRON [Concomitant]
     Active Substance: IRON
     Indication: ANAEMIA
     Dosage: 50 MG, BID
     Route: 048
     Dates: start: 201208, end: 20130804
  50. GABAPENTIN. [Concomitant]
     Active Substance: GABAPENTIN
     Dosage: 300 MG, QD
     Route: 048
     Dates: start: 20130807, end: 20130807
  51. COLACE [Concomitant]
     Active Substance: DOCUSATE SODIUM
     Indication: CONSTIPATION PROPHYLAXIS
     Dosage: 100 MG, QD
     Route: 048
     Dates: start: 20130806, end: 20130806
  52. VANCOMYCIN [Concomitant]
     Active Substance: VANCOMYCIN
     Indication: CELLULITIS
     Dosage: 1500 MG, QD
     Route: 042
     Dates: start: 20130520, end: 20130531
  53. COLCHICINE. [Concomitant]
     Active Substance: COLCHICINE
     Indication: GOUT
     Dosage: 0.6 MG, QD
     Dates: start: 20130219, end: 20130828
  54. TRAZODONE [Concomitant]
     Active Substance: TRAZODONE HYDROCHLORIDE
     Indication: INSOMNIA
     Dosage: 150 MG, QD
     Route: 048
     Dates: start: 2002, end: 20130804
  55. SIMVASTATIN. [Concomitant]
     Active Substance: SIMVASTATIN
     Dosage: 40 MG, QD
     Route: 048
     Dates: start: 20130809
  56. VITAMIN B12 [Concomitant]
     Active Substance: CYANOCOBALAMIN
     Dosage: 1 MG, QD
     Route: 048
     Dates: start: 20130808
  57. NOVOLOG [Concomitant]
     Active Substance: INSULIN ASPART
     Indication: DIABETES MELLITUS
     Dosage: 1-10 SLIDING SCALE, IU HS
     Route: 058
     Dates: start: 20130805, end: 20130808
  58. LEVEMIR [Concomitant]
     Active Substance: INSULIN DETEMIR
     Dosage: 63 IU, QD
     Dates: start: 20130808, end: 20130808
  59. MINOCYCLINE [Concomitant]
     Active Substance: MINOCYCLINE\MINOCYCLINE HYDROCHLORIDE
     Indication: CELLULITIS
     Dosage: 100 MG, QD
     Route: 042
     Dates: start: 20130507, end: 20130513
  60. BUMETANIDE. [Concomitant]
     Active Substance: BUMETANIDE
     Dosage: 1 MG, BID
     Route: 048
     Dates: start: 20130809
  61. METOLAZONE. [Concomitant]
     Active Substance: METOLAZONE
     Indication: OEDEMA PERIPHERAL
     Dosage: 5 MG, PRN
     Route: 048
     Dates: start: 2009

REACTIONS (2)
  - Diabetic foot infection [Recovered/Resolved]
  - Acute kidney injury [Recovered/Resolved]

NARRATIVE: CASE EVENT DATE: 201305
